FAERS Safety Report 19241274 (Version 1)
Quarter: 2021Q2

REPORT INFORMATION
  Report Type: Spontaneous
  Country: US (occurrence: US)
  Receive Date: 20210511
  Receipt Date: 20210511
  Transmission Date: 20210717
  Serious: Yes (Death, Hospitalization)
  Sender: FDA-Public Use
  Company Number: None

PATIENT
  Age: 64 Year
  Sex: Male
  Weight: 94.1 kg

DRUGS (2)
  1. CYTARABINE. [Suspect]
     Active Substance: CYTARABINE
     Dates: end: 20210325
  2. DAUNORUBICIN [Suspect]
     Active Substance: DAUNORUBICIN
     Dates: end: 20210320

REACTIONS (12)
  - Pulmonary mass [None]
  - Pleural effusion [None]
  - Condition aggravated [None]
  - Acute kidney injury [None]
  - Respiratory failure [None]
  - Hypotension [None]
  - Unresponsive to stimuli [None]
  - Large intestine infection [None]
  - Septic shock [None]
  - Atelectasis [None]
  - Critical illness [None]
  - Renal tubular necrosis [None]

NARRATIVE: CASE EVENT DATE: 20210329
